FAERS Safety Report 4476754-5 (Version None)
Quarter: 2004Q4

REPORT INFORMATION
  Report Type: 
  Country: None (occurrence: None)
  Receive Date: 20041013
  Receipt Date: 20040923
  Transmission Date: 20050328
  Serious: Yes (Hospitalization, Other)
  Sender: FDA-Public Use
  Company Number: USA020515152

PATIENT
  Age: 69 Year
  Sex: Female
  Weight: 55 kg

DRUGS (4)
  1. HUMALOG [Suspect]
     Indication: DIABETES MELLITUS
     Dosage: 15 U/2 DAY
     Dates: start: 20020101
  2. HUMULIN N [Suspect]
     Indication: DIABETES MELLITUS
     Dates: end: 20010101
  3. HUMULIN R [Suspect]
     Indication: DIABETES MELLITUS
     Dates: start: 20010101
  4. LANTUS [Concomitant]

REACTIONS (8)
  - ARTHRALGIA [None]
  - BLOOD GLUCOSE DECREASED [None]
  - BLOOD GLUCOSE INCREASED [None]
  - FEELING ABNORMAL [None]
  - LOSS OF CONSCIOUSNESS [None]
  - MEDICATION ERROR [None]
  - NECK PAIN [None]
  - PAIN IN EXTREMITY [None]
